FAERS Safety Report 8909914 (Version 2)
Quarter: 2012Q4

REPORT INFORMATION
  Report Type: 
  Country: CA (occurrence: CA)
  Receive Date: 20121115
  Receipt Date: 20121212
  Transmission Date: 20130627
  Serious: Yes (Death, Hospitalization)
  Sender: FDA-Public Use
  Company Number: CA-PFIZER INC-2012282864

PATIENT
  Sex: Female

DRUGS (1)
  1. INLYTA [Suspect]
     Indication: METASTATIC RENAL CELL CARCINOMA
     Dosage: 5 mg, 2x/day
     Route: 048
     Dates: start: 20121019

REACTIONS (3)
  - Febrile neutropenia [Recovered/Resolved]
  - Disease progression [Fatal]
  - Metastatic renal cell carcinoma [Fatal]
